FAERS Safety Report 13125886 (Version 2)
Quarter: 2017Q1

REPORT INFORMATION
  Report Type: Spontaneous
  Country: US (occurrence: US)
  Receive Date: 20170118
  Receipt Date: 20170215
  Transmission Date: 20170428
  Serious: No
  Sender: FDA-Public Use
  Company Number: US-ASTRAZENECA-2017SE03544

PATIENT
  Sex: Female

DRUGS (1)
  1. BYDUREON [Suspect]
     Active Substance: EXENATIDE
     Route: 065
     Dates: start: 2017

REACTIONS (4)
  - Underdose [Unknown]
  - Circumstance or information capable of leading to medication error [Unknown]
  - Injection site mass [Unknown]
  - Movement disorder [Unknown]

NARRATIVE: CASE EVENT DATE: 201701
